FAERS Safety Report 5147270-2 (Version None)
Quarter: 2006Q4

REPORT INFORMATION
  Report Type: 
  Country: None (occurrence: None)
  Receive Date: 20061103
  Receipt Date: 20061018
  Transmission Date: 20070319
  Serious: Yes (Other)
  Sender: FDA-Public Use
  Company Number: PR-2006-024102

PATIENT
  Age: 40 Year
  Sex: Female

DRUGS (2)
  1. BETASERON [Suspect]
     Indication: MULTIPLE SCLEROSIS
     Dosage: SEE IMAGE
     Route: 058
     Dates: start: 20060728, end: 20060807
  2. BETASERON [Suspect]
     Indication: MULTIPLE SCLEROSIS
     Dosage: SEE IMAGE
     Route: 058
     Dates: start: 20060918, end: 20061009

REACTIONS (4)
  - EPISTAXIS [None]
  - MENORRHAGIA [None]
  - MOUTH HAEMORRHAGE [None]
  - VAGINAL HAEMORRHAGE [None]
